FAERS Safety Report 6502651-7 (Version None)
Quarter: 2009Q4

REPORT INFORMATION
  Report Type: 
  Country: None (occurrence: None)
  Receive Date: 20091127
  Receipt Date: 20090813
  Transmission Date: 20100525
  Serious: No
  Sender: FDA-Public Use
  Company Number: 001534

PATIENT

DRUGS (1)
  1. LACOSAMIDE [Suspect]

REACTIONS (1)
  - DECREASED APPETITE [None]
